FAERS Safety Report 12779790 (Version 1)
Quarter: 2016Q3

REPORT INFORMATION
  Report Type: Spontaneous
  Country: FR (occurrence: FR)
  Receive Date: 20160926
  Receipt Date: 20160926
  Transmission Date: 20161109
  Serious: Yes (Death)
  Sender: FDA-Public Use
  Company Number: FR-SA-2016SA175346

PATIENT
  Age: 81 Year
  Sex: Male
  Weight: 85 kg

DRUGS (6)
  1. MYOZYME [Suspect]
     Active Substance: ALGLUCOSIDASE ALFA
     Indication: GLYCOGEN STORAGE DISEASE TYPE II
     Dosage: DOSE OF 1 TIME/2 WEEKS
     Route: 041
     Dates: start: 20080128, end: 20160804
  2. AMIODARONE [Concomitant]
     Active Substance: AMIODARONE
  3. AMLODIPINE [Concomitant]
     Active Substance: AMLODIPINE BESYLATE
  4. FUROSEMIDE. [Concomitant]
     Active Substance: FUROSEMIDE
  5. PREVISCAN [Concomitant]
     Active Substance: FLUINDIONE
  6. INIPOMP [Concomitant]
     Active Substance: PANTOPRAZOLE SODIUM

REACTIONS (1)
  - Respiratory failure [Fatal]

NARRATIVE: CASE EVENT DATE: 20160917
